FAERS Safety Report 10371240 (Version 1)
Quarter: 2014Q3

REPORT INFORMATION
  Report Type: Spontaneous
  Country: US (occurrence: US)
  Receive Date: 20140808
  Receipt Date: 20140808
  Transmission Date: 20150326
  Serious: No
  Sender: FDA-Public Use
  Company Number: US-PFIZER INC-2014218897

PATIENT
  Age: 75 Year
  Sex: Female
  Weight: 72.56 kg

DRUGS (2)
  1. GABAPENTIN. [Suspect]
     Active Substance: GABAPENTIN
     Dosage: 100 MG, UNK
     Route: 048
     Dates: start: 2011, end: 2011
  2. GABAPENTIN. [Suspect]
     Active Substance: GABAPENTIN
     Indication: FIBROMYALGIA
     Dosage: 300 MG, UNK
     Route: 048
     Dates: start: 2011, end: 2011

REACTIONS (3)
  - Drug ineffective [Unknown]
  - Somnolence [Unknown]
  - Drug intolerance [Unknown]

NARRATIVE: CASE EVENT DATE: 2011
